FAERS Safety Report 7550379-7 (Version None)
Quarter: 2011Q2

REPORT INFORMATION
  Report Type: 
  Country: None (occurrence: None)
  Receive Date: 20110615
  Receipt Date: 20110609
  Transmission Date: 20111010
  Serious: Yes (Death)
  Sender: FDA-Public Use
  Company Number: FR-ROCHE-747211

PATIENT
  Sex: Male
  Weight: 70 kg

DRUGS (6)
  1. JANUVIA [Concomitant]
  2. ESCITALOPRAM [Concomitant]
  3. PEGINTERFERON ALFA-2A [Suspect]
     Dosage: LAST DOSE PRIOR TO SAE WAS GIVEN ON 29 OCT 2010
     Route: 058
     Dates: start: 20100326
  4. GLUCOPHAGE [Concomitant]
  5. RIBAVIRIN [Suspect]
     Dosage: LAST DOSE PRIOR TO SAE WAS GIVEN ON 02 NOVEMBER 2010
     Route: 048
     Dates: start: 20100326
  6. BENSERAZIDE/LEVODOPA [Suspect]
     Route: 065
     Dates: start: 20101027

REACTIONS (1)
  - NERVOUS SYSTEM DISORDER [None]
